FAERS Safety Report 6887100-1 (Version None)
Quarter: 2010Q3

REPORT INFORMATION
  Report Type: 
  Country: None (occurrence: None)
  Receive Date: 20100708
  Receipt Date: 20091216
  Transmission Date: 20110219
  Serious: Yes (Death)
  Sender: FDA-Public Use
  Company Number: 2009303974

PATIENT
  Age: 62 Year
  Sex: Male
  Weight: 107.9 kg

DRUGS (8)
  1. CHANTIX [Suspect]
     Indication: TOBACCO ABUSE
     Dosage: ORAL
     Route: 048
     Dates: start: 20091006
  2. NORVASC [Concomitant]
  3. BENICAR [Concomitant]
  4. PRILOSEC (OMEPRAZOLE) [Concomitant]
  5. SPIRIVA [Concomitant]
  6. SEE IMAGE [Concomitant]
  7. ASPIRIN [Concomitant]
  8. ALBUTEROL (SALBUTOMOL) [Concomitant]

REACTIONS (1)
  - COMPLETED SUICIDE [None]
